FAERS Safety Report 26038627 (Version 1)
Quarter: 2025Q4

REPORT INFORMATION
  Report Type: Spontaneous
  Country: JP (occurrence: JP)
  Receive Date: 20251113
  Receipt Date: 20251113
  Transmission Date: 20260118
  Serious: Yes (Hospitalization, Other)
  Sender: ROCHE
  Company Number: JP-ROCHE-10000433614

PATIENT
  Age: 3 Decade
  Sex: Female

DRUGS (1)
  1. RITUXAN [Suspect]
     Active Substance: RITUXIMAB
     Indication: Encephalitis autoimmune
     Route: 042

REACTIONS (3)
  - Infective chondritis [Recovering/Resolving]
  - Hypogammaglobulinaemia [Unknown]
  - Off label use [Unknown]
